FAERS Safety Report 5143043-5 (Version None)
Quarter: 2006Q4

REPORT INFORMATION
  Report Type: 
  Country: None (occurrence: None)
  Receive Date: 20061031
  Receipt Date: 20061031
  Transmission Date: 20070319
  Serious: Yes (Life-Threatening)
  Sender: FDA-Public Use
  Company Number: None

PATIENT
  Age: 81 Year
  Sex: Female
  Weight: 110.6777 kg

DRUGS (9)
  1. LOVENOX [Suspect]
     Indication: AORTIC THROMBOSIS
     Dosage: 60 MG Q 12 H SC
     Route: 058
     Dates: start: 20060515, end: 20060520
  2. LOVENOX [Suspect]
     Indication: ATRIAL FIBRILLATION
     Dosage: 60 MG Q 12 H SC
     Route: 058
     Dates: start: 20060515, end: 20060520
  3. COUMADIN [Suspect]
     Indication: ATRIAL FIBRILLATION
     Dosage: 5 MG DAILY PO
     Route: 048
     Dates: start: 20060515, end: 20060520
  4. ASPIRIN [Concomitant]
  5. LEVOTHYROXINE SODIUM [Concomitant]
  6. METRONIDAZOLE [Concomitant]
  7. METOPROLOL TARTRATE [Concomitant]
  8. FUROSEMIDE [Concomitant]
  9. PROPAFENONE HCL [Concomitant]

REACTIONS (5)
  - ABDOMINAL HAEMATOMA [None]
  - ABDOMINAL PAIN [None]
  - HYPOTENSION [None]
  - INTERNATIONAL NORMALISED RATIO INCREASED [None]
  - RENAL FAILURE [None]
